FAERS Safety Report 6436079-5 (Version None)
Quarter: 2009Q4

REPORT INFORMATION
  Report Type: 
  Country: None (occurrence: None)
  Receive Date: 20091111
  Receipt Date: 20091110
  Transmission Date: 20100525
  Serious: Yes (Hospitalization)
  Sender: FDA-Public Use
  Company Number: DE-WYE-G04840509

PATIENT
  Age: 67 Year
  Sex: Female
  Weight: 70 kg

DRUGS (17)
  1. VENLAFAXINE HCL [Suspect]
     Indication: DEPRESSION
     Route: 048
     Dates: start: 20090423, end: 20090428
  2. VENLAFAXINE HCL [Interacting]
     Route: 048
     Dates: start: 20090429, end: 20090507
  3. VENLAFAXINE HCL [Interacting]
     Route: 048
     Dates: start: 20090508, end: 20090517
  4. L-THYROXIN [Concomitant]
     Route: 048
  5. LORAZEPAM [Concomitant]
     Route: 048
     Dates: start: 20090320, end: 20090408
  6. LORAZEPAM [Concomitant]
     Route: 048
     Dates: start: 20090409, end: 20090609
  7. LORAZEPAM [Concomitant]
     Dosage: TAPERING FROM 2 TO 0 MG PER DAY
     Route: 048
     Dates: start: 20090610, end: 20090712
  8. PANTOPRAZOLE [Concomitant]
     Route: 048
  9. RAMIPRIL [Concomitant]
     Route: 048
     Dates: start: 20090331
  10. TORASEMIDE [Concomitant]
     Route: 048
     Dates: start: 20090417
  11. RISPERDAL [Interacting]
     Dosage: SLOWLY INCREASED FROM 0.5 TO 2 MG PER DAY
     Route: 048
     Dates: start: 20090407, end: 20090417
  12. RISPERDAL [Interacting]
     Route: 048
     Dates: start: 20090418, end: 20090422
  13. RISPERDAL [Interacting]
     Route: 048
     Dates: start: 20090423, end: 20090428
  14. RISPERDAL [Interacting]
     Route: 048
     Dates: start: 20090429, end: 20090505
  15. RISPERDAL [Interacting]
     Route: 048
     Dates: start: 20090506, end: 20090515
  16. RISPERDAL [Interacting]
     Dosage: TAPERING FROM 6 TO 0 MG PER DAY
     Route: 048
     Dates: start: 20090516, end: 20090520
  17. FELODIPINE [Concomitant]
     Route: 048

REACTIONS (2)
  - DRUG INTERACTION [None]
  - PARKINSONISM [None]
